FAERS Safety Report 6787670-8 (Version None)
Quarter: 2010Q2

REPORT INFORMATION
  Report Type: 
  Country: None (occurrence: None)
  Receive Date: 20100621
  Receipt Date: 20100616
  Transmission Date: 20101027
  Serious: Yes (Death, Hospitalization)
  Sender: FDA-Public Use
  Company Number: 616567

PATIENT
  Sex: Female

DRUGS (2)
  1. METHOTREXATE [Suspect]
  2. ENBREL [Suspect]
     Dosage: 50MG MILLIGRAM(S) 1 WEEK
     Dates: start: 20100301

REACTIONS (2)
  - DYSPNOEA [None]
  - LUNG DISORDER [None]
